FAERS Safety Report 9769143 (Version 5)
Quarter: 2014Q2

REPORT INFORMATION
  Report Type: Report from Study
  Country: GB (occurrence: GB)
  Receive Date: 20131218
  Receipt Date: 20140613
  Transmission Date: 20141212
  Serious: Yes (Other)
  Sender: FDA-Public Use
  Company Number: GB-JNJFOC-20131206841

PATIENT
  Sex: Male

DRUGS (6)
  1. STELARA [Suspect]
     Indication: PSORIASIS
     Dosage: ON WEEK 4
     Route: 058
     Dates: start: 20130925
  2. METHOTREXATE [Concomitant]
     Route: 065
  3. FOLIC ACID [Concomitant]
     Dosage: 5 DAY/WEEK
     Route: 065
  4. PREDNISOLONE [Concomitant]
     Route: 065
  5. DICLOFENAC [Concomitant]
     Route: 065
  6. OMEPRAZOLE [Concomitant]
     Route: 065

REACTIONS (4)
  - Kidney infection [Unknown]
  - Asthenia [Unknown]
  - Psoriasis [Recovering/Resolving]
  - Fatigue [Unknown]
